FAERS Safety Report 20916521 (Version 2)
Quarter: 2022Q2

REPORT INFORMATION
  Report Type: Spontaneous
  Country: US (occurrence: US)
  Receive Date: 20220605
  Receipt Date: 20220624
  Transmission Date: 20220720
  Serious: Yes (Other)
  Sender: FDA-Public Use
  Company Number: US-APOTEX-2022AP008614

PATIENT
  Age: 18 Year
  Sex: Male

DRUGS (1)
  1. NICOTINE TRANSDERMAL SYSTEM [Suspect]
     Active Substance: NICOTINE
     Indication: Smoking cessation therapy
     Dosage: 1 DOSAGE FORM, QD
     Route: 062
     Dates: start: 20220527, end: 20220527

REACTIONS (9)
  - Neuropathy peripheral [Unknown]
  - Pruritus [Unknown]
  - Malaise [Unknown]
  - Nausea [Unknown]
  - Dizziness exertional [Unknown]
  - Dizziness [Unknown]
  - Dyspnoea [Unknown]
  - Axillary pain [Unknown]
  - Confusional state [Unknown]

NARRATIVE: CASE EVENT DATE: 20220527
